FAERS Safety Report 22035044 (Version 1)
Quarter: 2023Q1

REPORT INFORMATION
  Report Type: Spontaneous
  Country: None (occurrence: US)
  Receive Date: 20230224
  Receipt Date: 20230224
  Transmission Date: 20230417
  Serious: No
  Sender: FDA-Public Use
  Company Number: US-GREER Laboratories, Inc.-2138380

PATIENT
  Age: 32 Year
  Sex: Female
  Weight: 66.818 kg

DRUGS (25)
  1. JOHNSON GRASS POLLEN [Suspect]
     Active Substance: SORGHUM HALEPENSE POLLEN
     Indication: Rhinitis allergic
     Route: 058
  2. 7 GRASS MIX [Suspect]
     Active Substance: AGROSTIS GIGANTEA POLLEN\ANTHOXANTHUM ODORATUM\DACTYLIS GLOMERATA\FESTUCA PRATENSIS\LOLIUM PERENNE\P
     Route: 058
  3. SHORT/GIANT RAGWEED MIXTURE [Suspect]
     Active Substance: AMBROSIA ARTEMISIIFOLIA POLLEN\AMBROSIA TRIFIDA POLLEN
     Route: 058
  4. POLLENS - WEEDS AND GARDEN PLANTS, PIGWEED, ROUGH REDROOT AMARANTHUS R [Suspect]
     Active Substance: AMARANTHUS RETROFLEXUS POLLEN
     Route: 058
  5. COMMON MUGWORT [Suspect]
     Active Substance: ARTEMISIA VULGARIS POLLEN
     Route: 058
  6. DOCK-SORREL MIX [Suspect]
     Active Substance: RUMEX ACETOSELLA POLLEN\RUMEX CRISPUS POLLEN
     Route: 058
  7. COCKLEBUR [Suspect]
     Active Substance: XANTHIUM STRUMARIUM POLLEN
     Route: 058
  8. LAMBS QUARTER [Suspect]
     Active Substance: CHENOPODIUM ALBUM POLLEN
     Route: 058
  9. BURWEED MARSH ELDER [Suspect]
     Active Substance: CYCLACHAENA XANTHIFOLIA POLLEN
     Route: 058
  10. ENGLISH PLANTAIN [Suspect]
     Active Substance: PLANTAGO LANCEOLATA POLLEN
     Route: 058
  11. CEDAR ELM [Suspect]
     Active Substance: ULMUS CRASSIFOLIA POLLEN
     Route: 058
  12. MAPLE-BOX ELDER POLLEN MIX [Suspect]
     Active Substance: ACER NEGUNDO POLLEN\ACER SACCHARUM POLLEN
     Route: 058
  13. EASTERN OAK POLLEN MIX [Suspect]
     Active Substance: QUERCUS ALBA POLLEN\QUERCUS RUBRA POLLEN\QUERCUS VELUTINA POLLEN
     Route: 058
  14. SHELLBARK HICKORY POLLEN [Suspect]
     Active Substance: CARYA LACINIOSA POLLEN
     Route: 058
  15. WHITE ASH [Suspect]
     Active Substance: FRAXINUS AMERICANA POLLEN
     Route: 058
  16. RED (RIVER) BIRCH [Suspect]
     Active Substance: BETULA NIGRA POLLEN
     Route: 058
  17. EASTERN COTTONWOOD [Suspect]
     Active Substance: POPULUS DELTOIDES POLLEN
     Route: 058
  18. RED MULBERRY [Suspect]
     Active Substance: MORUS RUBRA POLLEN
     Route: 058
  19. SWEET GUM [Suspect]
     Active Substance: LIQUIDAMBAR STYRACIFLUA POLLEN
     Route: 058
  20. QUEEN PALM [Suspect]
     Active Substance: SYAGRUS ROMANZOFFIANA POLLEN
     Route: 058
  21. EASTERN SYCAMORE POLLEN [Suspect]
     Active Substance: PLATANUS OCCIDENTALIS POLLEN
     Route: 058
  22. RED CEDAR [Suspect]
     Active Substance: JUNIPERUS VIRGINIANA POLLEN
     Route: 058
  23. AZELASTINE HYDROCHLORIDE [Concomitant]
     Active Substance: AZELASTINE HYDROCHLORIDE
     Route: 045
  24. BUDESONIDE [Concomitant]
     Active Substance: BUDESONIDE
     Route: 045
  25. CETIRIZINE [Concomitant]
     Active Substance: CETIRIZINE HYDROCHLORIDE

REACTIONS (3)
  - Flushing [Recovered/Resolved]
  - Flushing [Recovered/Resolved]
  - Paraesthesia [Recovered/Resolved]

NARRATIVE: CASE EVENT DATE: 20230118
